FAERS Safety Report 14206544 (Version 2)
Quarter: 2017Q4

REPORT INFORMATION
  Report Type: Report from Study
  Country: None (occurrence: RO)
  Receive Date: 20171120
  Receipt Date: 20171130
  Transmission Date: 20180321
  Serious: Yes (Hospitalization)
  Sender: FDA-Public Use
  Company Number: RO-ABBVIE-17K-135-2166120-00

PATIENT
  Age: 68 Year
  Sex: Male

DRUGS (3)
  1. OMNIC [Concomitant]
     Active Substance: TAMSULOSIN HYDROCHLORIDE
     Indication: URETHRAL ADENOMA
     Route: 048
  2. SIOFOR [Concomitant]
     Active Substance: METFORMIN HYDROCHLORIDE
     Indication: DIABETES MELLITUS
     Route: 048
  3. DUODOPA [Suspect]
     Active Substance: CARBIDOPA\LEVODOPA
     Indication: PARKINSON^S DISEASE
     Dosage: MD=3??CR=8.70??ED=8.50
     Route: 050
     Dates: start: 20141104

REACTIONS (11)
  - Vascular encephalopathy [Not Recovered/Not Resolved]
  - Lacunar infarction [Not Recovered/Not Resolved]
  - Fall [Recovering/Resolving]
  - Sinus bradycardia [Not Recovered/Not Resolved]
  - Mental disorder [Not Recovered/Not Resolved]
  - Diabetic neuropathy [Not Recovered/Not Resolved]
  - Stoma site hypergranulation [Recovering/Resolving]
  - Persistent depressive disorder [Not Recovered/Not Resolved]
  - Stoma site haemorrhage [Unknown]
  - Contusion [Recovering/Resolving]
  - Cerebral atrophy [Not Recovered/Not Resolved]

NARRATIVE: CASE EVENT DATE: 201711
